FAERS Safety Report 7672101-6 (Version None)
Quarter: 2011Q3

REPORT INFORMATION
  Report Type: 
  Country: None (occurrence: None)
  Receive Date: 20110809
  Receipt Date: 20110801
  Transmission Date: 20111222
  Serious: Yes (Other)
  Sender: FDA-Public Use
  Company Number: PHHY2011US69233

PATIENT
  Age: 16 Year
  Sex: Female

DRUGS (1)
  1. TOBI [Suspect]
     Dosage: 300 MG, TWICE A DAY FOR 21 DAYS, THEN 21 DAYS OFF
     Dates: start: 20100416

REACTIONS (1)
  - PNEUMONIA [None]
